FAERS Safety Report 18747811 (Version 11)
Quarter: 2024Q1

REPORT INFORMATION
  Report Type: Spontaneous
  Country: US (occurrence: US)
  Receive Date: 20210115
  Receipt Date: 20240209
  Transmission Date: 20240409
  Serious: Yes (Other)
  Sender: FDA-Public Use
  Company Number: US-PFIZER INC-2021024748

PATIENT
  Age: 83 Year
  Sex: Female

DRUGS (7)
  1. XELJANZ [Suspect]
     Active Substance: TOFACITINIB CITRATE
     Dosage: 5 MG, 2X/DAY MON-WED-FRI-SUN
     Route: 048
  2. XELJANZ [Suspect]
     Active Substance: TOFACITINIB CITRATE
     Dosage: 1 DF, DAILY TUES-THURS-SAT
     Route: 048
  3. XELJANZ [Suspect]
     Active Substance: TOFACITINIB CITRATE
     Dosage: 1 DF, DAILY TUES-THURS
     Route: 048
  4. XELJANZ [Suspect]
     Active Substance: TOFACITINIB CITRATE
     Dosage: 2 DF, DAILY REST OF THE WEEK
     Route: 048
  5. XELJANZ [Suspect]
     Active Substance: TOFACITINIB CITRATE
     Dosage: 1 DF, DAILY MON-WED-FRI
     Route: 048
  6. XELJANZ [Suspect]
     Active Substance: TOFACITINIB CITRATE
     Dosage: 2 DF, DAILY  TUES-THURS-SAT-SUN
     Route: 048
  7. MELOXICAM [Concomitant]
     Active Substance: MELOXICAM

REACTIONS (6)
  - Atrial fibrillation [Unknown]
  - Off label use [Unknown]
  - Hypoacusis [Unknown]
  - COVID-19 [Unknown]
  - Immune system disorder [Unknown]
  - Memory impairment [Unknown]
